FAERS Safety Report 14271168 (Version 1)
Quarter: 2017Q4

REPORT INFORMATION
  Report Type: Spontaneous
  Country: ZA (occurrence: ZA)
  Receive Date: 20171211
  Receipt Date: 20171211
  Transmission Date: 20180321
  Serious: Yes (Hospitalization)
  Sender: FDA-Public Use
  Company Number: ZA-MYLANLABS-2017M1076494

PATIENT
  Age: 48 Year
  Sex: Male

DRUGS (6)
  1. CLOMENT [Suspect]
     Active Substance: CLOZAPINE
     Indication: DEPRESSION
     Dosage: 25 MG, UNK
     Route: 048
  2. FUROSEMIDE MYLAN GENERICS [Suspect]
     Active Substance: FUROSEMIDE
     Indication: HYPERTENSION
     Dosage: 40 MG, UNK
     Route: 048
  3. DISPRIN [Suspect]
     Active Substance: ASPIRIN
     Indication: BLOOD VISCOSITY DECREASED
     Dosage: 300 MG, UNK
     Route: 048
  4. AZOR                               /00595201/ [Suspect]
     Active Substance: ALPRAZOLAM
     Indication: STRESS
     Dosage: 1 MG, UNK
     Route: 048
  5. PEPLOC /00550802/ [Suspect]
     Active Substance: RANITIDINE HYDROCHLORIDE
     Indication: ULCER
     Dosage: 40 MG, UNK
     Route: 048
  6. TRANQIPAM [Suspect]
     Active Substance: LORAZEPAM
     Indication: STRESS
     Dosage: 1 MG, UNK
     Route: 048

REACTIONS (1)
  - Hospitalisation [Unknown]
